FAERS Safety Report 6078548-6 (Version None)
Quarter: 2009Q1

REPORT INFORMATION
  Report Type: 
  Country: None (occurrence: None)
  Receive Date: 20090212
  Receipt Date: 20090212
  Transmission Date: 20090719
  Serious: Yes (Death, Hospitalization)
  Sender: FDA-Public Use
  Company Number: None

PATIENT
  Age: 58 Year
  Sex: Female

DRUGS (12)
  1. CETUXIMAB [Suspect]
     Indication: NON-SMALL CELL LUNG CANCER
     Dosage: 400 MG/M2
     Dates: end: 20080228
  2. CETUXIMAB [Suspect]
     Indication: NON-SMALL CELL LUNG CANCER
     Dosage: 250 MG/M2
     Dates: end: 20080306
  3. ATACAND [Concomitant]
  4. PROMETRIUM [Concomitant]
  5. PREMARIN [Concomitant]
  6. FLOVENT [Concomitant]
  7. FORADIL INHALER [Concomitant]
  8. SPIRIVA [Concomitant]
  9. COMBIVENT [Concomitant]
  10. METAMUCIL [Concomitant]
  11. ASPIRIN [Concomitant]
  12. TYLENOL [Concomitant]

REACTIONS (12)
  - ABASIA [None]
  - ASPERGILLOSIS [None]
  - ASTHENIA [None]
  - CARDIO-RESPIRATORY ARREST [None]
  - CHRONIC OBSTRUCTIVE PULMONARY DISEASE [None]
  - HERPES ZOSTER DISSEMINATED [None]
  - HYPOTENSION [None]
  - LUNG CONSOLIDATION [None]
  - LUNG INFILTRATION [None]
  - PNEUMONITIS [None]
  - RESPIRATORY FAILURE [None]
  - SPUTUM CULTURE POSITIVE [None]
